FAERS Safety Report 8901318 (Version 1)
Quarter: 2012Q4

REPORT INFORMATION
  Report Type: Report from Study
  Country: CA (occurrence: CA)
  Receive Date: 20121109
  Receipt Date: 20121109
  Transmission Date: 20130627
  Serious: Yes (Hospitalization, Other)
  Sender: FDA-Public Use
  Company Number: CA-ABBOTT-12P-028-0999528-00

PATIENT
  Age: 67 Year
  Sex: Female
  Weight: 63.56 kg

DRUGS (19)
  1. HUMIRA [Suspect]
     Indication: RHEUMATOID ARTHRITIS
     Route: 058
     Dates: start: 20040908, end: 20111201
  2. HUMIRA [Suspect]
     Route: 058
     Dates: start: 20120824, end: 20121008
  3. PREDNISONE [Suspect]
     Indication: PRODUCT USED FOR UNKNOWN INDICATION
     Dosage: 5 MG
     Dates: start: 2010, end: 2012
  4. NEXIUM [Concomitant]
     Indication: PRODUCT USED FOR UNKNOWN INDICATION
     Dosage: 40 MG
     Dates: start: 2005, end: 2012
  5. PAMIDRONATE [Concomitant]
     Indication: PRODUCT USED FOR UNKNOWN INDICATION
  6. VIT D [Concomitant]
     Indication: PRODUCT USED FOR UNKNOWN INDICATION
     Dosage: 10000UI
  7. CALCIUM [Concomitant]
     Indication: PRODUCT USED FOR UNKNOWN INDICATION
  8. FLEXERIL [Concomitant]
     Indication: PRODUCT USED FOR UNKNOWN INDICATION
  9. EURO FOLIC [Concomitant]
     Indication: PRODUCT USED FOR UNKNOWN INDICATION
  10. COLACE [Concomitant]
     Indication: PRODUCT USED FOR UNKNOWN INDICATION
  11. SENOKOT [Concomitant]
     Indication: PRODUCT USED FOR UNKNOWN INDICATION
  12. WELLBUTRIN [Concomitant]
     Indication: PRODUCT USED FOR UNKNOWN INDICATION
  13. CITALOPRAM [Concomitant]
     Indication: PRODUCT USED FOR UNKNOWN INDICATION
  14. FERROUS SULFATE [Concomitant]
     Indication: PRODUCT USED FOR UNKNOWN INDICATION
  15. ACETAMINOPHEN [Concomitant]
     Indication: PRODUCT USED FOR UNKNOWN INDICATION
  16. METHOTREXATE [Concomitant]
     Indication: PRODUCT USED FOR UNKNOWN INDICATION
  17. VENTOLIN [Concomitant]
     Indication: PRODUCT USED FOR UNKNOWN INDICATION
  18. ATIVAN [Concomitant]
     Indication: PRODUCT USED FOR UNKNOWN INDICATION
  19. CELEBREX [Concomitant]
     Indication: PRODUCT USED FOR UNKNOWN INDICATION

REACTIONS (2)
  - Joint dislocation [Recovering/Resolving]
  - Device component issue [Recovered/Resolved]
